FAERS Safety Report 10556996 (Version 1)
Quarter: 2014Q4

REPORT INFORMATION
  Report Type: Spontaneous
  Country: US (occurrence: None)
  Receive Date: 20141029
  Receipt Date: 20141029
  Transmission Date: 20150529
  Serious: Yes (Death, Hospitalization)
  Sender: FDA-Public Use
  Company Number: 2014100049

PATIENT
  Age: 42 Year
  Sex: Female

DRUGS (5)
  1. ALPRAZOLAM (ALPRAZOLAM) [Suspect]
     Active Substance: ALPRAZOLAM
     Route: 048
  2. TRAMADOL (TRAMADOL) [Suspect]
     Active Substance: TRAMADOL
     Route: 048
  3. ZOLPIDEM [Suspect]
     Active Substance: ZOLPIDEM\ZOLPIDEM TARTRATE
     Route: 048
  4. PROPRANOLOL [Suspect]
     Active Substance: PROPRANOLOL\PROPRANOLOL HYDROCHLORIDE
     Route: 048
  5. PARACETAMOL (PARACETAMOL) [Concomitant]
     Active Substance: ACETAMINOPHEN

REACTIONS (8)
  - Blood glucose increased [None]
  - Toxicity to various agents [None]
  - Hyperlipidaemia [None]
  - Cardiogenic shock [None]
  - Exposure via ingestion [None]
  - Laboratory test interference [None]
  - Cardiac arrest [None]
  - Intentional overdose [None]
